FAERS Safety Report 17765355 (Version 1)
Quarter: 2020Q2

REPORT INFORMATION
  Report Type: Spontaneous
  Country: US (occurrence: US)
  Receive Date: 20200511
  Receipt Date: 20200511
  Transmission Date: 20200714
  Serious: No
  Sender: FDA-Public Use
  Company Number: US-PFIZER INC-2020186501

PATIENT
  Sex: Female

DRUGS (1)
  1. ADVIL [Suspect]
     Active Substance: IBUPROFEN
     Dosage: 6 DF (TAKEN 6 IN TOTAL WITHIN 4 HOURS)

REACTIONS (2)
  - Intentional product misuse [Unknown]
  - Lip swelling [Unknown]
